FAERS Safety Report 4760370-1 (Version None)
Quarter: 2005Q3

REPORT INFORMATION
  Report Type: 
  Country: None (occurrence: None)
  Receive Date: 20050826
  Receipt Date: 20050711
  Transmission Date: 20060218
  Serious: No
  Sender: FDA-Public Use
  Company Number: 2005US002597

PATIENT
  Sex: Female

DRUGS (2)
  1. ALOXI [Suspect]
     Indication: PROPHYLAXIS OF NAUSEA AND VOMITING
     Dosage: SINGLE, INTRAVENOUS
     Route: 042
     Dates: start: 20050708, end: 20050708
  2. GEMCITABINE(GEMCITABINE) [Suspect]
     Indication: CHEMOTHERAPY
     Dosage: INTRAVENOUS
     Route: 042
     Dates: start: 20050708, end: 20050708

REACTIONS (1)
  - RASH [None]
